FAERS Safety Report 15957626 (Version 2)
Quarter: 2019Q1

REPORT INFORMATION
  Report Type: Spontaneous
  Country: US (occurrence: US)
  Receive Date: 20190213
  Receipt Date: 20190327
  Transmission Date: 20190417
  Serious: No
  Sender: FDA-Public Use
  Company Number: US-SA-2019SA037256

PATIENT
  Age: 48 Year
  Sex: Male

DRUGS (1)
  1. LANTUS [Suspect]
     Active Substance: INSULIN GLARGINE
     Indication: TYPE 1 DIABETES MELLITUS
     Dosage: 10 U, BID
     Route: 065

REACTIONS (3)
  - Blood glucose increased [Unknown]
  - Device leakage [Unknown]
  - Inappropriate schedule of product administration [Unknown]
